FAERS Safety Report 5026672-9 (Version None)
Quarter: 2006Q2

REPORT INFORMATION
  Report Type: 
  Country: None (occurrence: None)
  Receive Date: 20060615
  Receipt Date: 20060613
  Transmission Date: 20061013
  Serious: Yes (Other)
  Sender: FDA-Public Use
  Company Number: JP-JPN-A200602043

PATIENT

DRUGS (1)
  1. FLUTIDE [Suspect]
     Route: 055

REACTIONS (3)
  - DYSPHONIA [None]
  - RESPIRATORY MONILIASIS [None]
  - VOCAL CORD ATROPHY [None]
